FAERS Safety Report 5747311-5 (Version None)
Quarter: 2008Q2

REPORT INFORMATION
  Report Type: 
  Country: None (occurrence: None)
  Receive Date: 20080523
  Receipt Date: 20080515
  Transmission Date: 20081010
  Serious: Yes (Hospitalization)
  Sender: FDA-Public Use
  Company Number: US-JNJFOC-20080503757

PATIENT
  Sex: Female
  Weight: 129.28 kg

DRUGS (1)
  1. DURAGESIC-100 [Suspect]
     Indication: PAIN
     Route: 062

REACTIONS (5)
  - AUTOIMMUNE DISORDER [None]
  - DEHYDRATION [None]
  - ESCHERICHIA INFECTION [None]
  - FALL [None]
  - PAIN [None]
